FAERS Safety Report 24254404 (Version 1)
Quarter: 2024Q3

REPORT INFORMATION
  Report Type: Spontaneous
  Country: US (occurrence: None)
  Receive Date: 20240826
  Receipt Date: 20240826
  Transmission Date: 20241017
  Serious: Yes (Life-Threatening, Hospitalization, Other)
  Sender: Public
  Company Number: None

PATIENT
  Age: 73 Year
  Sex: Male

DRUGS (1)
  1. INLYTA [Suspect]
     Active Substance: AXITINIB
     Indication: Metastases to lung
     Dosage: OTHER FREQUENCY : EVERY12HOURS;?
     Route: 048

REACTIONS (2)
  - Myocardial infarction [None]
  - Therapy interrupted [None]
